FAERS Safety Report 7294962-5 (Version None)
Quarter: 2011Q1

REPORT INFORMATION
  Report Type: 
  Country: None (occurrence: None)
  Receive Date: 20110216
  Receipt Date: 20110209
  Transmission Date: 20110831
  Serious: Yes (Hospitalization)
  Sender: FDA-Public Use
  Company Number: US-ABBOTT-11P-163-0695135-00

PATIENT
  Sex: Female
  Weight: 69.008 kg

DRUGS (8)
  1. IMODIUM [Concomitant]
     Indication: DIARRHOEA
  2. XANAX [Concomitant]
     Indication: NERVOUSNESS
  3. HUMIRA [Suspect]
     Dates: start: 20101231
  4. HUMIRA [Suspect]
     Indication: CROHN'S DISEASE
     Dosage: ONLY TOOK THE LOADING DOSE
     Dates: start: 20101215, end: 20101224
  5. NICOTINE PATCH [Concomitant]
     Indication: EX-TOBACCO USER
  6. WELLBUTRIN [Concomitant]
     Indication: EX-TOBACCO USER
  7. PREDNISONE [Concomitant]
     Indication: CROHN'S DISEASE
     Dosage: TAPERING
  8. VICODIN [Concomitant]
     Indication: BONE PAIN
     Dosage: 5/500MG, 2-6 TABS DAILY

REACTIONS (3)
  - WHEEZING [None]
  - DYSPNOEA [None]
  - BRONCHITIS [None]
